FAERS Safety Report 20598916 (Version 1)
Quarter: 2022Q1

REPORT INFORMATION
  Report Type: Report from Study
  Country: US (occurrence: None)
  Receive Date: 20220315
  Receipt Date: 20220315
  Transmission Date: 20220424
  Serious: Yes (Death)
  Sender: FDA-Public Use
  Company Number: US-ROCHE-3050379

PATIENT
  Age: 62 Year
  Sex: Female

DRUGS (9)
  1. CIBISATAMAB [Suspect]
     Active Substance: CIBISATAMAB
     Indication: Colorectal adenocarcinoma
     Route: 042
     Dates: start: 20201103
  2. OBINUTUZUMAB [Suspect]
     Active Substance: OBINUTUZUMAB
     Indication: Colorectal adenocarcinoma
     Route: 042
     Dates: start: 20201019
  3. ATEZOLIZUMAB [Suspect]
     Active Substance: ATEZOLIZUMAB
     Indication: Colorectal adenocarcinoma
     Route: 041
     Dates: start: 20201103
  4. PROBIOTICS NOS [Concomitant]
     Active Substance: PROBIOTICS NOS
  5. VITAMIN C [Concomitant]
     Active Substance: ASCORBIC ACID
  6. BIOTIN [Concomitant]
     Active Substance: BIOTIN
  7. COLLAGEN [Concomitant]
     Active Substance: COLLAGEN
  8. SENOKOT [Concomitant]
     Active Substance: SENNOSIDES
     Indication: Constipation
     Dates: start: 20201020
  9. IMODIUM [Concomitant]
     Active Substance: LOPERAMIDE HYDROCHLORIDE
     Indication: Diarrhoea
     Dates: start: 20201104

REACTIONS (1)
  - Death [Fatal]

NARRATIVE: CASE EVENT DATE: 20211222
